FAERS Safety Report 14477151 (Version 1)
Quarter: 2018Q1

REPORT INFORMATION
  Report Type: Spontaneous
  Country: US (occurrence: US)
  Receive Date: 20180201
  Receipt Date: 20180201
  Transmission Date: 20180509
  Serious: No
  Sender: FDA-Public Use
  Company Number: US-EXELIXIS-CABO-17009959

PATIENT
  Sex: Male

DRUGS (2)
  1. SUPPLEMENTS [Concomitant]
     Active Substance: UNSPECIFIED INGREDIENT
  2. CABOMETYX [Suspect]
     Active Substance: CABOZANTINIB S-MALATE
     Indication: RENAL CANCER
     Dosage: 40 MG, QD
     Route: 048
     Dates: end: 201706

REACTIONS (5)
  - Nervousness [Unknown]
  - Lung disorder [Unknown]
  - Skin ulcer [Unknown]
  - Blister [Recovered/Resolved]
  - Diarrhoea [Unknown]
